FAERS Safety Report 6653531-8 (Version None)
Quarter: 2010Q1

REPORT INFORMATION
  Report Type: 
  Country: None (occurrence: None)
  Receive Date: 20100323
  Receipt Date: 20100323
  Transmission Date: 20100710
  Serious: No
  Sender: FDA-Public Use
  Company Number: None

PATIENT
  Age: 33 Year
  Sex: Female

DRUGS (4)
  1. KETOCONAZOLE [Suspect]
     Dates: start: 20051115, end: 20060115
  2. ACTOS [Concomitant]
  3. AMOXICILLIN [Concomitant]
  4. BIAXIN [Concomitant]

REACTIONS (7)
  - ASCITES [None]
  - HEPATIC CIRRHOSIS [None]
  - HEPATIC STEATOSIS [None]
  - HEPATOTOXICITY [None]
  - PERITONITIS BACTERIAL [None]
  - PORTAL HYPERTENSION [None]
  - THROMBOCYTOPENIA [None]
